FAERS Safety Report 11404453 (Version 11)
Quarter: 2016Q4

REPORT INFORMATION
  Report Type: Spontaneous
  Country: US (occurrence: US)
  Receive Date: 20150821
  Receipt Date: 20161213
  Transmission Date: 20170206
  Serious: Yes (Life-Threatening, Hospitalization, Disabling, Other)
  Sender: FDA-Public Use
  Company Number: US-PFIZER INC-2015274869

PATIENT
  Age: 60 Year
  Sex: Female
  Weight: 79 kg

DRUGS (27)
  1. LYRICA [Suspect]
     Active Substance: PREGABALIN
     Indication: PAIN
     Dosage: 300 MG, 2X/DAY
     Route: 048
     Dates: start: 20150902
  2. TYLENOL [Concomitant]
     Active Substance: ACETAMINOPHEN
     Dosage: UNK (325 TYLENOL)
  3. MUPIROCIN. [Concomitant]
     Active Substance: MUPIROCIN
     Indication: SKIN ULCER
     Dosage: 2 %, 2X/DAY
     Route: 061
     Dates: start: 20160224
  4. MORPHINE [Concomitant]
     Active Substance: MORPHINE
     Indication: BREAKTHROUGH PAIN
     Dosage: 100 MG, UNK
     Route: 048
     Dates: start: 2015
  5. IRON [Concomitant]
     Active Substance: IRON
     Dosage: NOT TAKE MUCH, SUPPOSED TO TAKE 1 EVERY 3 DAYS
  6. LYRICA [Suspect]
     Active Substance: PREGABALIN
     Indication: NEUROPATHY PERIPHERAL
     Dosage: 100 MG, UNK
     Route: 048
  7. XANAX [Concomitant]
     Active Substance: ALPRAZOLAM
     Dosage: 1 MG, AS NEEDED (MOSTLY AT NIGHT)
     Route: 048
  8. MORPHINE [Concomitant]
     Active Substance: MORPHINE
     Dosage: 30 MG, 4X/DAY (EVERY 6 HOURS REGULAR)
     Route: 048
  9. METHADONE [Concomitant]
     Active Substance: METHADONE HYDROCHLORIDE
     Indication: PAIN
     Dosage: 30 MG, 3X/DAY (10MG PILLS, 3 OF THEM 3 TIMES A DAY)
     Dates: end: 2015
  10. MORPHINE ER [Concomitant]
     Active Substance: MORPHINE
     Indication: PAIN
     Dosage: 60 MG, 2X/DAY ONCE IN AM AND ONCE IN PM
     Route: 048
  11. MORPHINE SULFATE. [Concomitant]
     Active Substance: MORPHINE SULFATE
     Dosage: 30 MG, AS NEEDED (4 A DAY AS NEEDED)
     Dates: start: 2016
  12. NORVASC [Concomitant]
     Active Substance: AMLODIPINE BESYLATE
     Dosage: 5 MG, DAILY
     Route: 048
     Dates: start: 20160224
  13. MORPHINE ER [Concomitant]
     Active Substance: MORPHINE
     Dosage: 60 MG, 2X/DAY EVERY 12 HOURS
     Route: 048
     Dates: start: 20160615
  14. TORADOL [Concomitant]
     Active Substance: KETOROLAC TROMETHAMINE
     Indication: PAIN IN EXTREMITY
     Dosage: ADMINISTERED IN LOWER BACK, AS NEEDED
     Dates: start: 20160628
  15. LYRICA [Suspect]
     Active Substance: PREGABALIN
     Dosage: 300 MG, 2X/DAY
  16. XANAX [Concomitant]
     Active Substance: ALPRAZOLAM
     Indication: SLEEP DISORDER
     Dosage: 0.1 MG, AS NEEDED (0.1MG, SUPPOSED TO TAKE 3 A DAY AS NEEDED)
  17. PERCOCET [Concomitant]
     Active Substance: ACETAMINOPHEN\OXYCODONE HYDROCHLORIDE
     Indication: BREAKTHROUGH PAIN
     Dosage: ^10 PERCOCET, TAKES AS NEEDED^
  18. HYDRALAZINE HCL [Concomitant]
     Active Substance: HYDRALAZINE HYDROCHLORIDE
     Dosage: 10 MG, 3X/DAY
     Route: 048
     Dates: start: 20160224
  19. ALPRAZOLAM. [Concomitant]
     Active Substance: ALPRAZOLAM
     Indication: ANXIETY
     Dosage: 1 MG, AS NEEDED EVERY 8 HR(OFF AND ON MOSTLY ON 20 YRS)
     Route: 048
     Dates: start: 20160615
  20. MORPHINE ER [Concomitant]
     Active Substance: MORPHINE
     Dosage: 60 MG, 2X/DAY
     Route: 048
     Dates: start: 2015
  21. LIDOCAINE. [Concomitant]
     Active Substance: LIDOCAINE
     Indication: PAIN IN EXTREMITY
     Dosage: ADMINISTERED IN LOWER BACK, AS NEEDED
     Dates: start: 20160628
  22. LYRICA [Suspect]
     Active Substance: PREGABALIN
     Indication: NEURALGIA
     Dosage: 225 MG, 2X/DAY
     Route: 048
  23. LYRICA [Suspect]
     Active Substance: PREGABALIN
     Dosage: 300 MG, 3X/DAY
     Route: 048
  24. LYRICA [Suspect]
     Active Substance: PREGABALIN
     Dosage: 25 MG, 1X/DAY
     Route: 048
     Dates: end: 20160622
  25. PROZAC [Concomitant]
     Active Substance: FLUOXETINE HYDROCHLORIDE
     Indication: DEPRESSION
     Dosage: 40 MG, DAILY (20MG, 2 CAPSULES A DAY)
  26. MORPHINE [Concomitant]
     Active Substance: MORPHINE
     Indication: PAIN
     Dosage: 30 MG, AS NEEDED (EVERY 6 HR AS NEEDED)
     Route: 048
     Dates: start: 20160613
  27. MORPHINE SULFATE. [Concomitant]
     Active Substance: MORPHINE SULFATE
     Indication: PAIN
     Dosage: 60 MG, 2X/DAY

REACTIONS (19)
  - Weight increased [Unknown]
  - Pain [Recovered/Resolved]
  - Coma [Unknown]
  - Hypotension [Recovered/Resolved]
  - Drug ineffective [Not Recovered/Not Resolved]
  - Septic shock [Unknown]
  - Abasia [Not Recovered/Not Resolved]
  - Osteomyelitis [Unknown]
  - Somnolence [Recovered/Resolved]
  - Shock [Unknown]
  - Condition aggravated [Unknown]
  - Hallucination [Not Recovered/Not Resolved]
  - Memory impairment [Not Recovered/Not Resolved]
  - Nephrolithiasis [Recovered/Resolved]
  - Malaise [Recovered/Resolved]
  - Insomnia [Not Recovered/Not Resolved]
  - Intentional product use issue [Not Recovered/Not Resolved]
  - Sepsis [Not Recovered/Not Resolved]
  - Urinary tract infection [Not Recovered/Not Resolved]

NARRATIVE: CASE EVENT DATE: 2006
